FAERS Safety Report 7957942-X (Version None)
Quarter: 2011Q4

REPORT INFORMATION
  Report Type: 
  Country: None (occurrence: None)
  Receive Date: 20111205
  Receipt Date: 20111123
  Transmission Date: 20120403
  Serious: Yes (Hospitalization)
  Sender: FDA-Public Use
  Company Number: CA-JNJFOC-20111201332

PATIENT
  Sex: Female

DRUGS (3)
  1. CORTISONE ACETATE [Suspect]
     Indication: MUSCULOSKELETAL STIFFNESS
     Dates: end: 20101213
  2. REMICADE [Suspect]
     Route: 042
     Dates: start: 20070101, end: 20110801
  3. REMICADE [Suspect]
     Indication: CROHN'S DISEASE
     Route: 042
     Dates: start: 20111001

REACTIONS (4)
  - APHAGIA [None]
  - INTESTINAL RESECTION [None]
  - MUSCULOSKELETAL STIFFNESS [None]
  - MYALGIA [None]
